FAERS Safety Report 12480939 (Version 1)
Quarter: 2016Q2

REPORT INFORMATION
  Report Type: Spontaneous
  Country: US (occurrence: US)
  Receive Date: 20160620
  Receipt Date: 20160620
  Transmission Date: 20160815
  Serious: Yes (Death, Life-Threatening, Other)
  Sender: FDA-Public Use
  Company Number: US-SYNEX-T201602544

PATIENT
  Age: 66 Year
  Sex: Male

DRUGS (5)
  1. INOMAX [Suspect]
     Active Substance: NITRIC OXIDE
     Indication: PULMONARY HYPERTENSION
     Dosage: 40 PPM
     Dates: start: 20160605
  2. FENTANYL. [Concomitant]
     Active Substance: FENTANYL
     Dosage: 50 MCG/KG
  3. NOREPINEPHRINE [Concomitant]
     Active Substance: NOREPINEPHRINE\NOREPINEPHRINE BITARTRATE
     Dosage: 0.16 MCG/KG
  4. SODIUM BICARBONATE. [Concomitant]
     Active Substance: SODIUM BICARBONATE
     Dosage: 100 ML
  5. EPINEPHRINE. [Concomitant]
     Active Substance: EPINEPHRINE
     Dosage: 0.3 MCG/KG

REACTIONS (7)
  - Cardio-respiratory arrest [Recovered/Resolved]
  - Heart rate decreased [Recovered/Resolved]
  - Off label use [Unknown]
  - Blood pressure decreased [Recovered/Resolved]
  - Device issue [Unknown]
  - Oxygen saturation decreased [Recovered/Resolved]
  - Heart transplant rejection [Fatal]

NARRATIVE: CASE EVENT DATE: 20160609
